FAERS Safety Report 10934869 (Version 2)
Quarter: 2015Q1

REPORT INFORMATION
  Report Type: Spontaneous
  Country: US (occurrence: US)
  Receive Date: 20150320
  Receipt Date: 20150325
  Transmission Date: 20150721
  Serious: No
  Sender: FDA-Public Use
  Company Number: US-009507513-1503USA001018

PATIENT
  Age: 30 Year
  Sex: Female
  Weight: 64.4 kg

DRUGS (1)
  1. IMPLANON [Suspect]
     Active Substance: ETONOGESTREL
     Indication: CONTRACEPTION
     Dosage: 1 IMPLANT/3 YEARS, LEFT ARM
     Route: 059
     Dates: start: 20120606

REACTIONS (3)
  - Hypoaesthesia [Not Recovered/Not Resolved]
  - Heart rate increased [Unknown]
  - Pain in extremity [Not Recovered/Not Resolved]

NARRATIVE: CASE EVENT DATE: 201502
